FAERS Safety Report 22615805 (Version 1)
Quarter: 2023Q2

REPORT INFORMATION
  Report Type: Spontaneous
  Country: US (occurrence: US)
  Receive Date: 20230619
  Receipt Date: 20230619
  Transmission Date: 20230722
  Serious: No
  Sender: FDA-Public Use
  Company Number: US-ABBVIE-5292835

PATIENT
  Age: 77 Year
  Sex: Female
  Weight: 60.327 kg

DRUGS (2)
  1. HUMIRA [Suspect]
     Active Substance: ADALIMUMAB
     Indication: Crohn^s disease
     Dosage: FORM STRENGTH: 40 MILLIGRAM
     Route: 058
     Dates: start: 2000
  2. COLESTIPOL [Concomitant]
     Active Substance: COLESTIPOL
     Indication: Crohn^s disease

REACTIONS (3)
  - Injection site bruising [Recovering/Resolving]
  - Unevaluable event [Not Recovered/Not Resolved]
  - Injection site haemorrhage [Recovered/Resolved]

NARRATIVE: CASE EVENT DATE: 20230526
